FAERS Safety Report 15107103 (Version 10)
Quarter: 2019Q4

REPORT INFORMATION
  Report Type: Spontaneous
  Country: US (occurrence: US)
  Receive Date: 20180704
  Receipt Date: 20191213
  Transmission Date: 20200122
  Serious: Yes (Other)
  Sender: FDA-Public Use
  Company Number: US-PFIZER INC-2018269465

PATIENT
  Age: 71 Year
  Sex: Female

DRUGS (2)
  1. BOSULIF [Suspect]
     Active Substance: BOSUTINIB MONOHYDRATE
     Dosage: 200 MG, 1X/DAY (WITH FOOD AND PLENTY OF WATER)
     Route: 048
     Dates: end: 20191016
  2. BOSULIF [Suspect]
     Active Substance: BOSUTINIB MONOHYDRATE
     Indication: CHRONIC MYELOID LEUKAEMIA
     Dosage: 200 MG, DAILY
     Route: 048
     Dates: start: 20180626

REACTIONS (12)
  - Dizziness [Unknown]
  - Loss of consciousness [Unknown]
  - Renal disorder [Recovered/Resolved]
  - Nerve compression [Unknown]
  - Blood creatinine increased [Unknown]
  - Heart rate decreased [Unknown]
  - Nephritis [Recovering/Resolving]
  - Diarrhoea [Recovered/Resolved]
  - Myalgia [Unknown]
  - Cervical spinal stenosis [Unknown]
  - Dizziness postural [Unknown]
  - Early satiety [Unknown]

NARRATIVE: CASE EVENT DATE: 2018
